FAERS Safety Report 5906180-0 (Version None)
Quarter: 2008Q4

REPORT INFORMATION
  Report Type: 
  Country: None (occurrence: None)
  Receive Date: 20081002
  Receipt Date: 20080924
  Transmission Date: 20090506
  Serious: Yes (Hospitalization)
  Sender: FDA-Public Use
  Company Number: DE-SANOFI-SYNTHELABO-F04200800090

PATIENT
  Sex: Male

DRUGS (4)
  1. DOCETAXEL [Suspect]
     Indication: GASTRIC CANCER
     Route: 041
     Dates: start: 20080710, end: 20080710
  2. LEUCOVORIN CALCIUM [Suspect]
     Indication: GASTRIC CANCER
     Route: 041
     Dates: start: 20080710, end: 20080710
  3. FLUOROURACIL [Suspect]
     Indication: GASTRIC CANCER
     Route: 041
     Dates: start: 20080710, end: 20080710
  4. ELOXATIN [Suspect]
     Indication: GASTRIC CANCER
     Route: 041
     Dates: start: 20080710, end: 20080710

REACTIONS (12)
  - ABDOMINAL PAIN [None]
  - CONFUSIONAL STATE [None]
  - DIARRHOEA [None]
  - DYSPHONIA [None]
  - ILEAL GANGRENE [None]
  - ILEITIS [None]
  - NAUSEA [None]
  - PERITONITIS [None]
  - PNEUMONIA [None]
  - RESPIRATORY FAILURE [None]
  - VOMITING [None]
  - WEIGHT DECREASED [None]
